FAERS Safety Report 7088958-6 (Version None)
Quarter: 2010Q4

REPORT INFORMATION
  Report Type: 
  Country: None (occurrence: None)
  Receive Date: 20101108
  Receipt Date: 20101027
  Transmission Date: 20110411
  Serious: Yes (Other)
  Sender: FDA-Public Use
  Company Number: GB-WATSON-2010-14461

PATIENT
  Age: 37 Year
  Sex: Female

DRUGS (1)
  1. MORPHINE SULFATE INJ [Suspect]
     Indication: MUSCULOSKELETAL PAIN
     Dosage: 110 MG, BID
     Route: 048

REACTIONS (1)
  - HYPOGONADISM [None]
